FAERS Safety Report 6630916-7 (Version None)
Quarter: 2010Q1

REPORT INFORMATION
  Report Type: 
  Country: None (occurrence: None)
  Receive Date: 20100311
  Receipt Date: 20100301
  Transmission Date: 20100710
  Serious: Yes (Hospitalization)
  Sender: FDA-Public Use
  Company Number: BE-ELI_LILLY_AND_COMPANY-BE201003000681

PATIENT
  Age: 30 Year
  Sex: Male

DRUGS (7)
  1. ZYPREXA [Suspect]
     Dosage: 20 MG, UNK
     Route: 048
     Dates: start: 20090923
  2. CLOPIXOL /00876701/ [Concomitant]
     Dosage: 80 MG, UNK
     Route: 048
     Dates: start: 20090926, end: 20090929
  3. CLOPIXOL /00876701/ [Concomitant]
     Dosage: 50 MG, UNK
     Route: 048
     Dates: start: 20091019, end: 20091020
  4. ZOLPIDEM [Concomitant]
     Dosage: 10 MG, UNK
     Route: 048
     Dates: start: 20091002, end: 20091004
  5. DOMINAL [Concomitant]
     Dosage: 320 MG, UNK
     Route: 048
     Dates: start: 20091002, end: 20091004
  6. LORMETAZEPAM [Concomitant]
     Dosage: 2 MG, UNK
     Route: 048
     Dates: start: 20091004, end: 20091007
  7. SOLIAN [Concomitant]
     Dosage: 400 MG, DAILY (1/D)

REACTIONS (3)
  - AKATHISIA [None]
  - DRUG INTERACTION [None]
  - RESTLESS LEGS SYNDROME [None]
